FAERS Safety Report 25383629 (Version 1)
Quarter: 2025Q2

REPORT INFORMATION
  Report Type: Spontaneous
  Country: US (occurrence: US)
  Receive Date: 20250602
  Receipt Date: 20250602
  Transmission Date: 20250717
  Serious: No
  Sender: ABBVIE
  Company Number: US-ABBVIE-6303749

PATIENT
  Age: 65 Year
  Sex: Male

DRUGS (2)
  1. VENCLEXTA [Suspect]
     Active Substance: VENETOCLAX
     Indication: Myelodysplastic syndrome
     Dosage: STRENGTH: 100 MG
     Route: 048
     Dates: start: 20250225
  2. INQOVI [Suspect]
     Active Substance: CEDAZURIDINE\DECITABINE
     Indication: Myelodysplastic syndrome
     Dosage: DAYS 1-3 OF A 28-DAY CYCLE
     Route: 048
     Dates: start: 20250225

REACTIONS (3)
  - Pruritus [Unknown]
  - Inappropriate schedule of product administration [Unknown]
  - Rash [Unknown]
